FAERS Safety Report 9027057 (Version 5)
Quarter: 2013Q4

REPORT INFORMATION
  Report Type: Spontaneous
  Country: US (occurrence: US)
  Receive Date: 20130123
  Receipt Date: 20131227
  Transmission Date: 20140711
  Serious: Yes (Hospitalization)
  Sender: FDA-Public Use
  Company Number: US-B.I. PHARMACEUTICALS,INC./RIDGEFIELD-2013-BI-00989BP

PATIENT
  Age: 81 Year
  Sex: Male
  Weight: 74.84 kg

DRUGS (8)
  1. PRADAXA [Suspect]
     Indication: ATRIAL FIBRILLATION
     Dosage: 300 MG
     Route: 048
     Dates: start: 20110105, end: 20110117
  2. PRADAXA [Suspect]
     Indication: INTRACARDIAC THROMBUS
  3. ASPIRIN [Concomitant]
     Dosage: 81 MG
     Route: 048
     Dates: start: 20110106
  4. SIMVASTATIN [Concomitant]
     Indication: HYPERLIPIDAEMIA
     Dosage: 40 MG
     Route: 048
  5. VERAPAMIL [Concomitant]
     Dosage: 180 MG
     Route: 048
  6. DIGOXIN [Concomitant]
     Dosage: 125 MCG
     Route: 048
  7. LEVOTHYROXINE [Concomitant]
     Indication: HYPOTHYROIDISM
     Dosage: 100 MCG
     Route: 048
  8. GLUCOSAMINE [Concomitant]
     Route: 048

REACTIONS (8)
  - Subdural haemorrhage [Unknown]
  - Subdural haematoma [Unknown]
  - Subdural haematoma [Unknown]
  - Subdural haematoma [Unknown]
  - Subdural haematoma [Unknown]
  - Haemorrhagic stroke [Unknown]
  - Cerebral haemorrhage [Unknown]
  - Ischaemic stroke [Unknown]
